FAERS Safety Report 24444863 (Version 2)
Quarter: 2024Q4

REPORT INFORMATION
  Report Type: Report from Study
  Country: US (occurrence: US)
  Receive Date: 20241016
  Receipt Date: 20241017
  Transmission Date: 20250114
  Serious: No
  Sender: ROCHE
  Company Number: US-ROCHE-3016238

PATIENT
  Age: 53 Year
  Sex: Male

DRUGS (4)
  1. RITUXAN [Suspect]
     Active Substance: RITUXIMAB
     Indication: Nephrotic syndrome
     Dosage: FOR 27 WEEKS AND DATE OF SERVICE: 16/SEP/2021 AND 30/SEP/2021? FREQUENCY TEXT:ON DAY 1 AND DAY 15
     Route: 042
  2. LIPITOR [Concomitant]
     Active Substance: ATORVASTATIN CALCIUM
     Route: 048
  3. LASIX [Concomitant]
     Active Substance: FUROSEMIDE
     Route: 048
  4. PRINZIDE [Concomitant]
     Active Substance: HYDROCHLOROTHIAZIDE\LISINOPRIL
     Dosage: 20- 25 MG
     Route: 048

REACTIONS (2)
  - Off label use [Unknown]
  - No adverse event [Unknown]
